FAERS Safety Report 16582737 (Version 1)
Quarter: 2019Q3

REPORT INFORMATION
  Report Type: Spontaneous
  Country: FR (occurrence: FR)
  Receive Date: 20190717
  Receipt Date: 20190717
  Transmission Date: 20191004
  Serious: Yes (Other)
  Sender: FDA-Public Use
  Company Number: FR-TEVA-2019-FR-1077321

PATIENT
  Age: 81 Year
  Sex: Female
  Weight: 46 kg

DRUGS (6)
  1. FLUOROURACILE ACCORD [Suspect]
     Active Substance: FLUOROURACIL
     Indication: PANCREATIC CARCINOMA METASTATIC
     Dosage: 560MG
     Route: 040
     Dates: start: 20190619, end: 20190619
  2. OXALIPLATINE [Suspect]
     Active Substance: OXALIPLATIN
     Indication: PANCREATIC CARCINOMA METASTATIC
     Dosage: 140MG
     Route: 042
     Dates: start: 20190619, end: 20190619
  3. FLUOROURACILE ACCORD [Suspect]
     Active Substance: FLUOROURACIL
     Route: 041
     Dates: start: 20190619, end: 20190621
  4. METHYLPREDNISOLONE. [Concomitant]
     Active Substance: METHYLPREDNISOLONE
     Route: 042
     Dates: start: 20190619, end: 20190619
  5. LEVOFOLINATE CALCIQUE [Concomitant]
     Active Substance: LEVOLEUCOVORIN CALCIUM
     Route: 042
     Dates: start: 20190619, end: 20190619
  6. ONDANSETRON [Concomitant]
     Active Substance: ONDANSETRON
     Indication: PROPHYLAXIS OF NAUSEA AND VOMITING
     Dosage: 8MG
     Route: 042
     Dates: start: 20190619, end: 20190619

REACTIONS (2)
  - Monoparesis [Recovered/Resolved]
  - Dysarthria [Recovered/Resolved]

NARRATIVE: CASE EVENT DATE: 20190619
